FAERS Safety Report 9604059 (Version 1)
Quarter: 2013Q4

REPORT INFORMATION
  Report Type: Spontaneous
  Country: US (occurrence: US)
  Receive Date: 20131008
  Receipt Date: 20131008
  Transmission Date: 20140711
  Serious: Yes (Other)
  Sender: FDA-Public Use
  Company Number: US-MERCK-1310USA002766

PATIENT
  Sex: Male

DRUGS (8)
  1. JANUVIA [Suspect]
     Indication: TYPE 2 DIABETES MELLITUS
     Dosage: 50 MG, QD
     Route: 048
  2. COUMADIN [Concomitant]
  3. LIPITOR [Concomitant]
  4. LASIX (FUROSEMIDE) [Concomitant]
  5. COREG [Concomitant]
  6. GLIPIZIDE [Concomitant]
  7. POTASSIUM (UNSPECIFIED) [Concomitant]
  8. AMIODARONE [Concomitant]

REACTIONS (1)
  - Pancreatitis [Unknown]
